FAERS Safety Report 17456946 (Version 1)
Quarter: 2020Q1

REPORT INFORMATION
  Report Type: Spontaneous
  Country: US (occurrence: US)
  Receive Date: 20200225
  Receipt Date: 20200225
  Transmission Date: 20200409
  Serious: Yes (Hospitalization)
  Sender: FDA-Public Use
  Company Number: US-CELGENEUS-USA-20200207107

PATIENT
  Age: 50 Year
  Sex: Female

DRUGS (1)
  1. OTEZLA [Suspect]
     Active Substance: APREMILAST
     Indication: ORAL DISORDER
     Dosage: 60 MILLIGRAM
     Route: 048

REACTIONS (1)
  - Muscle disorder [Recovered/Resolved]

NARRATIVE: CASE EVENT DATE: 20200118
